FAERS Safety Report 6223663-7 (Version None)
Quarter: 2009Q2

REPORT INFORMATION
  Report Type: 
  Country: None (occurrence: None)
  Receive Date: 20090611
  Receipt Date: 20090305
  Transmission Date: 20091009
  Serious: No
  Sender: FDA-Public Use
  Company Number: US-ABBOTT-08P-163-0481208-00

PATIENT
  Sex: Female

DRUGS (1)
  1. HUMIRA [Suspect]
     Indication: PSORIATIC ARTHROPATHY
     Dates: start: 20070510, end: 20090209

REACTIONS (4)
  - ALOPECIA AREATA [None]
  - FEELING COLD [None]
  - INSOMNIA [None]
  - NASOPHARYNGITIS [None]
